FAERS Safety Report 9153613 (Version 1)
Quarter: 2013Q1

REPORT INFORMATION
  Report Type: Spontaneous
  Country: US (occurrence: US)
  Receive Date: 20130311
  Receipt Date: 20130311
  Transmission Date: 20140127
  Serious: Yes (Other)
  Sender: FDA-Public Use
  Company Number: PHEH2013US005458

PATIENT
  Age: 26 Year
  Sex: Female

DRUGS (1)
  1. FANAPT [Suspect]
     Dosage: UNK
     Route: 048
     Dates: start: 20130305

REACTIONS (1)
  - Galactorrhoea [Not Recovered/Not Resolved]
